FAERS Safety Report 6332625-0 (Version None)
Quarter: 2009Q3

REPORT INFORMATION
  Report Type: 
  Country: None (occurrence: None)
  Receive Date: 20090828
  Receipt Date: 20090824
  Transmission Date: 20100115
  Serious: Yes (Hospitalization, Other)
  Sender: FDA-Public Use
  Company Number: US-ROXANE LABORATORIES, INC.-2009-RO-00858RO

PATIENT
  Age: 42 Year
  Sex: Female

DRUGS (15)
  1. RISPERIDONE [Suspect]
     Indication: SCHIZOAFFECTIVE DISORDER BIPOLAR TYPE
  2. TOPIRAMATE [Suspect]
     Indication: SCHIZOAFFECTIVE DISORDER BIPOLAR TYPE
     Dosage: 100 MG
  3. LORAZEPAM [Suspect]
     Indication: PSYCHOTIC DISORDER
     Dosage: 1 MG
     Route: 048
  4. LORAZEPAM [Suspect]
     Indication: AGITATION
  5. OLANZAPINE [Suspect]
     Indication: SCHIZOAFFECTIVE DISORDER BIPOLAR TYPE
  6. VALPROIC ACID [Suspect]
     Indication: SCHIZOAFFECTIVE DISORDER BIPOLAR TYPE
     Dosage: 500 MG
  7. DULOXETINE HYDROCHLORIDE [Suspect]
     Indication: SCHIZOAFFECTIVE DISORDER BIPOLAR TYPE
     Dosage: 30 MG
  8. DULOXETINE HYDROCHLORIDE [Suspect]
     Dosage: 60 MG
  9. QUETIAPINE [Suspect]
     Indication: PSYCHOTIC DISORDER
     Dosage: 25 MG
  10. QUETIAPINE [Suspect]
     Indication: AGITATION
  11. ZIPRASIDONE HCL [Suspect]
     Indication: PSYCHOTIC DISORDER
     Dosage: 40 MG
  12. ZIPRASIDONE HCL [Suspect]
     Indication: AGITATION
  13. ARIPIPRAZOLE [Concomitant]
     Indication: SCHIZOAFFECTIVE DISORDER BIPOLAR TYPE
     Dosage: 2.5 MG
  14. ARIPIPRAZOLE [Concomitant]
     Dosage: 5 MG
  15. ARIPIPRAZOLE [Concomitant]
     Dosage: 10 MG

REACTIONS (5)
  - AGITATION [None]
  - BLOOD CREATINE PHOSPHOKINASE INCREASED [None]
  - MANIA [None]
  - NEUROLEPTIC MALIGNANT SYNDROME [None]
  - PSYCHOTIC DISORDER [None]
